FAERS Safety Report 5804894-4 (Version None)
Quarter: 2008Q3

REPORT INFORMATION
  Report Type: 
  Country: None (occurrence: None)
  Receive Date: 20080709
  Receipt Date: 20080627
  Transmission Date: 20090109
  Serious: Yes (Death, Hospitalization, Other)
  Sender: FDA-Public Use
  Company Number: US-PFIZER INC-2007089535

PATIENT
  Sex: Female

DRUGS (2)
  1. NEURONTIN [Suspect]
  2. LYRICA [Suspect]

REACTIONS (4)
  - DEATH [None]
  - STAPHYLOCOCCAL INFECTION [None]
  - SURGERY [None]
  - UNEVALUABLE EVENT [None]
